FAERS Safety Report 17410325 (Version 1)
Quarter: 2020Q1

REPORT INFORMATION
  Report Type: Spontaneous
  Country: IT (occurrence: IT)
  Receive Date: 20200212
  Receipt Date: 20200212
  Transmission Date: 20200409
  Serious: Yes (Other)
  Sender: FDA-Public Use
  Company Number: IT-JNJFOC-20200203151

PATIENT
  Age: 78 Year
  Sex: Female
  Weight: 58 kg

DRUGS (5)
  1. DARZALEX [Suspect]
     Active Substance: DARATUMUMAB
     Indication: PLASMA CELL MYELOMA
     Dosage: CYCLICAL
     Route: 042
     Dates: start: 20190610
  2. DECADRON [Concomitant]
     Active Substance: DEXAMETHASONE
     Indication: ANTIINFLAMMATORY THERAPY
     Dosage: CYCLICAL
     Route: 041
     Dates: start: 20190610
  3. TRIMETON [Concomitant]
     Active Substance: CHLORPHENIRAMINE MALEATE
     Indication: ANTIALLERGIC THERAPY
     Dosage: ; AS REQUIRED
     Route: 042
     Dates: start: 20190610
  4. VELCADE [Suspect]
     Active Substance: BORTEZOMIB
     Indication: PLASMA CELL MYELOMA
     Dosage: CYCLICAL
     Route: 058
     Dates: start: 20190611, end: 20200110
  5. PARACETAMOL [Concomitant]
     Active Substance: ACETAMINOPHEN
     Indication: ANALGESIC THERAPY
     Dosage: ; AS REQUIRED
     Route: 041
     Dates: start: 20190610

REACTIONS (6)
  - Pain [Not Recovered/Not Resolved]
  - Off label use [Unknown]
  - Arthralgia [Not Recovered/Not Resolved]
  - Neuropathy peripheral [Not Recovered/Not Resolved]
  - Incorrect dose administered [Unknown]
  - Asthenia [Not Recovered/Not Resolved]

NARRATIVE: CASE EVENT DATE: 20190802
